FAERS Safety Report 7208119-7 (Version None)
Quarter: 2010Q4

REPORT INFORMATION
  Report Type: 
  Country: None (occurrence: None)
  Receive Date: 20101230
  Receipt Date: 20101230
  Transmission Date: 20110411
  Serious: Yes (Other)
  Sender: FDA-Public Use
  Company Number: None

PATIENT
  Sex: Female
  Weight: 98.8842 kg

DRUGS (1)
  1. PROLIA [Suspect]
     Indication: DRUG INEFFECTIVE
     Dosage: INJET. -60 MG. 2X YEAR
     Dates: start: 20100920

REACTIONS (1)
  - FUNGAL INFECTION [None]
